FAERS Safety Report 24815732 (Version 2)
Quarter: 2025Q1

REPORT INFORMATION
  Report Type: Spontaneous
  Country: US (occurrence: US)
  Receive Date: 20250107
  Receipt Date: 20250109
  Transmission Date: 20250409
  Serious: No
  Sender: PFIZER
  Company Number: US-PFIZER INC-202500000360

PATIENT

DRUGS (1)
  1. NURTEC ODT [Suspect]
     Active Substance: RIMEGEPANT SULFATE
     Indication: Migraine

REACTIONS (5)
  - Expired product administered [Unknown]
  - Abdominal discomfort [Unknown]
  - Nausea [Unknown]
  - Malaise [Unknown]
  - Depressed mood [Unknown]
